FAERS Safety Report 7269985 (Version 4)
Quarter: 2013Q3

REPORT INFORMATION
  Report Type: Spontaneous
  Country: IT (occurrence: IT)
  Receive Date: 20100203
  Receipt Date: 20130927
  Transmission Date: 20140515
  Serious: Yes (Death, Hospitalization, Other)
  Sender: FDA-Public Use
  Company Number: IT-CELGENEUS-083-21880-09042031

PATIENT
  Sex: 0

DRUGS (8)
  1. REVLIMID [Suspect]
     Indication: PLASMA CELL MYELOMA
     Dosage: 18.75 MILLIGRAM
     Route: 048
  2. REVLIMID [Suspect]
     Dosage: 7.5 MILLIGRAM
     Route: 048
  3. REVLIMID [Suspect]
     Dosage: 20MG-15MG
     Route: 048
  4. REVLIMID [Suspect]
     Dosage: 10 MILLIGRAM
     Route: 048
  5. REVLIMID [Suspect]
     Dosage: 15MG-5MG
     Route: 048
  6. PREDNISONE [Suspect]
     Indication: PLASMA CELL MYELOMA
     Dosage: 50 MILLIGRAM
     Route: 065
  7. ASPIRIN [Concomitant]
     Indication: ANTICOAGULANT THERAPY
     Dosage: 100 MILLIGRAM
     Route: 065
  8. G-CSF [Concomitant]
     Indication: PRODUCT USED FOR UNKNOWN INDICATION
     Route: 065

REACTIONS (30)
  - Lung neoplasm [Recovered/Resolved]
  - Colon cancer [Fatal]
  - Basal cell carcinoma [Unknown]
  - Death [Fatal]
  - Neurotoxicity [Unknown]
  - Infection [Unknown]
  - Deep vein thrombosis [Unknown]
  - Neutropenia [Unknown]
  - Thrombocytopenia [Unknown]
  - Rash [Unknown]
  - Neuropathy peripheral [Unknown]
  - Pneumonia [Unknown]
  - Herpes zoster [Unknown]
  - Gastroenteritis [Unknown]
  - Fatigue [Unknown]
  - Pancytopenia [Unknown]
  - Disease progression [Fatal]
  - Supraventricular tachycardia [Unknown]
  - Anaemia [Unknown]
  - Constipation [Unknown]
  - Diarrhoea [Unknown]
  - Nausea [Unknown]
  - Vomiting [Unknown]
  - Mucosal inflammation [Unknown]
  - Pyrexia [Unknown]
  - Blood creatinine increased [Unknown]
  - Hyperglycaemia [Unknown]
  - Haemorrhage [Unknown]
  - Dyspnoea [Unknown]
  - Skin disorder [Unknown]
